FAERS Safety Report 5975663-X (Version None)
Quarter: 2008Q4

REPORT INFORMATION
  Report Type: 
  Country: None (occurrence: None)
  Receive Date: 20081125
  Receipt Date: 20071108
  Transmission Date: 20090506
  Serious: Yes (Hospitalization)
  Sender: FDA-Public Use
  Company Number: 2007-163237-NL

PATIENT
  Sex: Female

DRUGS (3)
  1. PUREGON [Suspect]
     Indication: INFERTILITY
     Dosage: 200 IU DAILY
     Dates: start: 20070707, end: 20070709
  2. CHORIONIC GONADOTROPIN [Suspect]
     Indication: ASSISTED FERTILISATION
     Dosage: 5000 IU ONCE
     Route: 015
     Dates: start: 20070710, end: 20070710
  3. ORGALUTRAN [Concomitant]

REACTIONS (1)
  - OVARIAN HYPERSTIMULATION SYNDROME [None]
